FAERS Safety Report 24177584 (Version 1)
Quarter: 2024Q3

REPORT INFORMATION
  Report Type: Spontaneous
  Country: US (occurrence: US)
  Receive Date: 20240806
  Receipt Date: 20240806
  Transmission Date: 20241016
  Serious: Yes (Hospitalization, Other)
  Sender: LUPIN
  Company Number: US-LUPIN PHARMACEUTICALS INC.-2024-07400

PATIENT
  Age: 15 Year
  Sex: Male

DRUGS (1)
  1. SULFAMETHOXAZOLE AND TRIMETHOPRIM [Suspect]
     Active Substance: SULFAMETHOXAZOLE\TRIMETHOPRIM
     Indication: Impetigo
     Dosage: UNK
     Route: 065

REACTIONS (5)
  - Traumatic lung injury [Not Recovered/Not Resolved]
  - Pneumomediastinum [Unknown]
  - Respiratory failure [Recovering/Resolving]
  - Pulmonary fibrosis [Not Recovered/Not Resolved]
  - Off label use [Unknown]
